FAERS Safety Report 5048860-8 (Version None)
Quarter: 2006Q3

REPORT INFORMATION
  Report Type: 
  Country: None (occurrence: None)
  Receive Date: 20060712
  Receipt Date: 20050101
  Transmission Date: 20061208
  Serious: Yes (Hospitalization)
  Sender: FDA-Public Use
  Company Number: US-GLAXOSMITHKLINE-A0550848A

PATIENT
  Age: 40 Year
  Sex: Female
  Weight: 79.1 kg

DRUGS (11)
  1. IMITREX [Suspect]
     Indication: MIGRAINE
     Dosage: 100MG AS REQUIRED
     Route: 048
     Dates: end: 20050101
  2. SERZONE [Concomitant]
     Dosage: 200MG PER DAY
  3. WELLBUTRIN XL [Concomitant]
     Dosage: 300MG PER DAY
  4. NORTRIPTYLINE HCL [Concomitant]
     Dosage: 100MG AT NIGHT
  5. ZETIA [Concomitant]
     Dosage: 10MG PER DAY
  6. NIASPAN [Concomitant]
     Dosage: 1000MG PER DAY
  7. VITAMIN B COMPLEX CAP [Concomitant]
     Dosage: 1TAB PER DAY
  8. PROTONIX [Concomitant]
     Dosage: 40MG PER DAY
  9. EXCEDRIN (MIGRAINE) [Concomitant]
  10. TRAMADOL HCL [Concomitant]
     Indication: HEADACHE
     Dosage: 50MG AS REQUIRED
  11. CALCIUM GLUCONATE [Concomitant]
     Dosage: 600MG PER DAY

REACTIONS (4)
  - ABDOMINAL PAIN [None]
  - COLITIS ISCHAEMIC [None]
  - HAEMATOCHEZIA [None]
  - NAUSEA [None]
